FAERS Safety Report 16775424 (Version 2)
Quarter: 2019Q3

REPORT INFORMATION
  Report Type: Spontaneous
  Country: US (occurrence: US)
  Receive Date: 20190905
  Receipt Date: 20190917
  Transmission Date: 20191005
  Serious: Yes (Other)
  Sender: FDA-Public Use
  Company Number: US-LUPIN PHARMACEUTICALS INC.-2019-05671

PATIENT
  Sex: Male
  Weight: 90.7 kg

DRUGS (2)
  1. LEVOTHYROXINE SODIUM TABLETS USP, 200 MCG [Suspect]
     Active Substance: LEVOTHYROXINE SODIUM
     Indication: THYROID HORMONES DECREASED
     Dosage: 200 MICROGRAM, QD (MONDAY TO SATURDAY)
     Route: 048
     Dates: start: 20190712, end: 20190726
  2. LEVOTHYROXINE SODIUM TABLETS USP, 200 MCG [Suspect]
     Active Substance: LEVOTHYROXINE SODIUM
     Dosage: 200 MICROGRAM, BID (ON SUNDAYS)
     Route: 048
     Dates: start: 20190712, end: 20190726

REACTIONS (9)
  - Agitation [Recovered/Resolved]
  - Product substitution issue [Unknown]
  - Thyroid hormones increased [Recovered/Resolved]
  - Palpitations [Recovered/Resolved]
  - Tachyphrenia [Recovered/Resolved]
  - Feeling abnormal [Recovered/Resolved]
  - Disturbance in attention [Recovered/Resolved]
  - Weight decreased [Not Recovered/Not Resolved]
  - Incorrect dose administered [Unknown]

NARRATIVE: CASE EVENT DATE: 20190712
